FAERS Safety Report 4984407-X (Version None)
Quarter: 2006Q2

REPORT INFORMATION
  Report Type: 
  Country: None (occurrence: None)
  Receive Date: 20060421
  Receipt Date: 20060411
  Transmission Date: 20061013
  Serious: Yes (Hospitalization, Other)
  Sender: FDA-Public Use
  Company Number: 2005089344

PATIENT
  Age: 63 Year
  Sex: Female

DRUGS (8)
  1. CELEBREX [Suspect]
     Indication: ILL-DEFINED DISORDER
     Dates: start: 20030201
  2. SINGULAIR ^DIECKMANN^ (MONTELUKAST SODIUM) [Concomitant]
  3. ATROVENT [Concomitant]
  4. ALL OTHER THERAPEUTIC PRODUCTS (ALL OTHER THERAPEUTIC PRODUCTS) [Concomitant]
  5. ALBUTEROL [Concomitant]
  6. GEMFIBROZIL [Concomitant]
  7. FLOVENT [Concomitant]
  8. TIAZIC (DILITIAZEM HYDROCHLORIDE) [Concomitant]

REACTIONS (14)
  - CAROTID ARTERY DISEASE [None]
  - CEREBROVASCULAR ACCIDENT [None]
  - DRUG DOSE OMISSION [None]
  - DYSARTHRIA [None]
  - EYE PAIN [None]
  - FACIAL PALSY [None]
  - FACIAL PARESIS [None]
  - FALL [None]
  - HEADACHE [None]
  - HEMIPARESIS [None]
  - HYPOAESTHESIA [None]
  - PARAESTHESIA [None]
  - THROMBOSIS [None]
  - TRANSIENT ISCHAEMIC ATTACK [None]
